FAERS Safety Report 5139231-4 (Version None)
Quarter: 2006Q4

REPORT INFORMATION
  Report Type: 
  Country: None (occurrence: None)
  Receive Date: 20061030
  Receipt Date: 20060718
  Transmission Date: 20070319
  Serious: Yes (Other)
  Sender: FDA-Public Use
  Company Number: US-GLAXOSMITHKLINE-A0612662A

PATIENT
  Age: 72 Year
  Sex: Female

DRUGS (10)
  1. ADVAIR HFA [Suspect]
     Indication: DRUG USE FOR UNKNOWN INDICATION
     Route: 055
     Dates: start: 20040101
  2. SPIRIVA [Concomitant]
     Route: 055
     Dates: start: 20060301
  3. ATROVENT [Concomitant]
     Dosage: 2PUFF FOUR TIMES PER DAY
     Route: 055
  4. HCT [Concomitant]
     Dosage: 1TAB PER DAY
     Route: 048
  5. AMBIEN [Concomitant]
     Dosage: 1TAB AT NIGHT
     Route: 048
  6. DILTIAZEM HCL [Concomitant]
     Dosage: 1CAP PER DAY
     Route: 048
  7. ACTONEL [Concomitant]
     Dosage: 1TAB WEEKLY
     Route: 048
  8. ALBUTEROL [Concomitant]
     Dosage: 2PUFF SIX TIMES PER DAY
     Route: 055
  9. PLAVIX [Concomitant]
     Dosage: 1TAB PER DAY
     Route: 048
  10. BRIMONIDINE TARTRATE [Concomitant]
     Dosage: 1DROP PER DAY
     Route: 047

REACTIONS (2)
  - DYSPNOEA [None]
  - PHARMACEUTICAL PRODUCT COMPLAINT [None]
